FAERS Safety Report 4625886-7 (Version None)
Quarter: 2005Q2

REPORT INFORMATION
  Report Type: 
  Country: None (occurrence: None)
  Receive Date: 20050404
  Receipt Date: 20050308
  Transmission Date: 20051028
  Serious: Yes (Other)
  Sender: FDA-Public Use
  Company Number: DE-BRISTOL-MYERS SQUIBB COMPANY-12892063

PATIENT
  Age: 57 Year
  Sex: Male
  Weight: 63 kg

DRUGS (2)
  1. TAXOL [Suspect]
     Indication: NON-SMALL CELL LUNG CANCER
     Dosage: CYCLE 1: 11-FEB-2005
     Route: 042
     Dates: start: 20050303, end: 20050303
  2. DEXAMETHASONE [Concomitant]
     Indication: PREMEDICATION
     Dosage: 1/2 HOUR PRIOR TO CHEMOTHERAPY ADMINISTRATION
     Dates: start: 20050303, end: 20050303

REACTIONS (1)
  - HYPERSENSITIVITY [None]
